FAERS Safety Report 18473793 (Version 1)
Quarter: 2020Q4

REPORT INFORMATION
  Report Type: Spontaneous
  Country: CA (occurrence: CA)
  Receive Date: 20201106
  Receipt Date: 20201106
  Transmission Date: 20210114
  Serious: Yes (Other)
  Sender: FDA-Public Use
  Company Number: CA-GLAXOSMITHKLINE-CA2020GSK219237

PATIENT
  Sex: Female

DRUGS (2)
  1. AVANDIA [Suspect]
     Active Substance: ROSIGLITAZONE MALEATE
     Dosage: 8 MG, QD
     Route: 048
  2. AVANDIA [Suspect]
     Active Substance: ROSIGLITAZONE MALEATE
     Indication: DIABETES MELLITUS
     Dosage: 4 MG, QD
     Route: 048
     Dates: start: 20030515, end: 20060713

REACTIONS (10)
  - Myocardial ischaemia [Unknown]
  - Stent placement [Unknown]
  - Coronary artery disease [Unknown]
  - Percutaneous coronary intervention [Unknown]
  - Chest discomfort [Unknown]
  - Sinus bradycardia [Unknown]
  - Acute coronary syndrome [Unknown]
  - Cardiac disorder [Unknown]
  - Angina unstable [Unknown]
  - Coronary artery bypass [Unknown]
